FAERS Safety Report 9999301 (Version 1)
Quarter: 2014Q1

REPORT INFORMATION
  Report Type: Spontaneous
  Country: US (occurrence: None)
  Receive Date: 20140311
  Receipt Date: 20140311
  Transmission Date: 20141002
  Serious: Yes (Other)
  Sender: FDA-Public Use
  Company Number: None

PATIENT
  Age: 17 Year
  Sex: Male
  Weight: 113.4 kg

DRUGS (3)
  1. METFORMIN [Suspect]
     Indication: GLUCOSE TOLERANCE IMPAIRED
     Dosage: 1 TABLET
     Route: 048
     Dates: start: 20140111, end: 20140307
  2. METFORMIN [Suspect]
     Indication: INSULIN RESISTANCE
     Dosage: 1 TABLET
     Route: 048
     Dates: start: 20140111, end: 20140307
  3. METFORMIN [Suspect]
     Indication: OVERWEIGHT
     Dosage: 1 TABLET
     Route: 048
     Dates: start: 20140111, end: 20140307

REACTIONS (3)
  - Somnolence [None]
  - Fatigue [None]
  - Depressed mood [None]
